FAERS Safety Report 8082193-0 (Version None)
Quarter: 2012Q1

REPORT INFORMATION
  Report Type: 
  Country: None (occurrence: None)
  Receive Date: 20120127
  Receipt Date: 20110127
  Transmission Date: 20120608
  Serious: No
  Sender: FDA-Public Use
  Company Number: US-ABBOTT-11P-163-0701947-00

PATIENT
  Sex: Male
  Weight: 73.548 kg

DRUGS (11)
  1. HUMIRA [Suspect]
     Indication: SYNOVITIS
     Route: 058
     Dates: start: 20090701
  2. LISINOPRIL AND HYDROCHLOROTHIAZIDE [Concomitant]
     Indication: HYPERTENSION
  3. FOSAMAX [Concomitant]
     Indication: PRODUCT USED FOR UNKNOWN INDICATION
  4. VITAMIN D [Concomitant]
     Indication: PRODUCT USED FOR UNKNOWN INDICATION
  5. AMLODIPINE [Concomitant]
     Indication: HYPERTENSION
  6. ASPIRIN [Concomitant]
     Indication: PRODUCT USED FOR UNKNOWN INDICATION
  7. OMEPRAZOLE [Concomitant]
     Indication: PRODUCT USED FOR UNKNOWN INDICATION
  8. HUMIRA [Suspect]
     Indication: WEIGHT DECREASED
  9. HUMIRA [Suspect]
     Indication: FATIGUE
  10. PREDNISONE TAB [Concomitant]
     Indication: SYNOVITIS
  11. CALCIUM [Concomitant]
     Indication: PRODUCT USED FOR UNKNOWN INDICATION

REACTIONS (5)
  - CHILLS [None]
  - FATIGUE [None]
  - INCORRECT STORAGE OF DRUG [None]
  - PYREXIA [None]
  - DRUG INEFFECTIVE [None]
